FAERS Safety Report 5823581-X (Version None)
Quarter: 2008Q3

REPORT INFORMATION
  Report Type: 
  Country: None (occurrence: None)
  Receive Date: 20080725
  Receipt Date: 20080714
  Transmission Date: 20090109
  Serious: Yes (Other)
  Sender: FDA-Public Use
  Company Number: DE-PFIZER INC-2006025801

PATIENT
  Sex: Female

DRUGS (3)
  1. XALATAN [Suspect]
  2. XALACOM [Suspect]
     Dosage: TEXT:UNKNOWN-FREQ:UNKNOWN
     Route: 061
  3. AZOPT [Suspect]
     Route: 061

REACTIONS (11)
  - AMAUROSIS [None]
  - ARRHYTHMIA [None]
  - ARTHRALGIA [None]
  - ASTHMA [None]
  - COUGH [None]
  - DRUG INEFFECTIVE [None]
  - DYSPNOEA [None]
  - INTRAOCULAR PRESSURE INCREASED [None]
  - MYALGIA [None]
  - PERIPHERAL COLDNESS [None]
  - VASOSPASM [None]
